FAERS Safety Report 24262410 (Version 1)
Quarter: 2024Q3

REPORT INFORMATION
  Report Type: Spontaneous
  Country: US (occurrence: US)
  Receive Date: 20240829
  Receipt Date: 20240829
  Transmission Date: 20241016
  Serious: Yes (Other)
  Sender: EMD SERONO INC
  Company Number: US-Merck Healthcare KGaA-2024045607

PATIENT
  Sex: Male

DRUGS (1)
  1. SEROSTIM [Suspect]
     Active Substance: SOMATROPIN
     Indication: Product used for unknown indication
     Dosage: EXPIRATION DATE 30-NOV-2026?LAST SHIP DATE 04-JUN-2024?INJECT UNDER THE SKIN (SUBCUTANEOUS)
     Route: 058
     Dates: start: 20240214

REACTIONS (4)
  - Neuropathy peripheral [Unknown]
  - Limb discomfort [Unknown]
  - Pain in extremity [Unknown]
  - Arthralgia [Unknown]
